FAERS Safety Report 7980825-6 (Version None)
Quarter: 2011Q4

REPORT INFORMATION
  Report Type: 
  Country: None (occurrence: None)
  Receive Date: 20111214
  Receipt Date: 20111210
  Transmission Date: 20120403
  Serious: Yes (Hospitalization, Other)
  Sender: FDA-Public Use
  Company Number: CA-ROCHE-665414

PATIENT
  Sex: Female
  Weight: 44.3 kg

DRUGS (10)
  1. PEGINTERFERON ALFA-2A [Suspect]
     Dosage: DOSE: 135 MICROGRAMS, STRENGTH: 180 G/ML
     Route: 058
  2. COPEGUS [Suspect]
     Route: 048
     Dates: start: 20090731, end: 20100128
  3. PEGINTERFERON ALFA-2A [Suspect]
     Dosage: REPORTED STRENGTH: 180 G/ML
     Route: 058
     Dates: start: 20091002, end: 20100122
  4. PEGINTERFERON ALFA-2A [Suspect]
     Dosage: REPORTED STRENGTH: 180 G/ML, DOSE: 90 MICROGRAMS
     Route: 058
  5. COPEGUS [Suspect]
     Indication: HEPATITIS C
     Route: 048
     Dates: start: 20090518, end: 20091022
  6. BI 201335 (HCV PROTEASE INHIBITOR) [Suspect]
     Dosage: TRIAL WAS UNBLINDED AND THE PATIENT RECEIVED BI 201335 WITHOUG LEAD-IN.
     Route: 048
  7. BI 201335 (HCV PROTEASE INHIBITOR) [Suspect]
     Indication: HEPATITIS C
     Dosage: TRIAL WAS UNBLINDED AND PATIENT RECEIVED BI 201335.
     Route: 048
     Dates: start: 20090518, end: 20091022
  8. PEGINTERFERON ALFA-2A [Suspect]
     Indication: HEPATITIS C
     Dosage: REPORTED STRENGTH: 180 G/ML, 45 G/ML WEEKLY
     Route: 058
     Dates: start: 20090518, end: 20091016
  9. COPEGUS [Suspect]
     Dosage: DOSE: 800 MG
     Route: 048
  10. COPEGUS [Suspect]
     Route: 048
     Dates: start: 20090518, end: 20100128

REACTIONS (6)
  - ANAEMIA [None]
  - FEBRILE NEUTROPENIA [None]
  - HAEMATURIA [None]
  - PANCYTOPENIA [None]
  - THROMBOCYTOPENIA [None]
  - NEPHROLITHIASIS [None]
